FAERS Safety Report 18216625 (Version 1)
Quarter: 2020Q3

REPORT INFORMATION
  Report Type: Spontaneous
  Country: FR (occurrence: FR)
  Receive Date: 20200901
  Receipt Date: 20200901
  Transmission Date: 20201103
  Serious: Yes (Life-Threatening)
  Sender: FDA-Public Use
  Company Number: FR-TEVA-2020-FR-1821564

PATIENT
  Age: 17 Year
  Sex: Female

DRUGS (1)
  1. TRAMADOL (CHLORHYDRATE DE) [Suspect]
     Active Substance: TRAMADOL HYDROCHLORIDE
     Dosage: 7 GRAM
     Route: 048
     Dates: start: 20200124, end: 20200124

REACTIONS (3)
  - Drug abuse [Recovered/Resolved with Sequelae]
  - Generalised tonic-clonic seizure [Recovered/Resolved]
  - Toxic cardiomyopathy [Recovered/Resolved]

NARRATIVE: CASE EVENT DATE: 20190124
